FAERS Safety Report 7060063-4 (Version None)
Quarter: 2010Q4

REPORT INFORMATION
  Report Type: 
  Country: None (occurrence: None)
  Receive Date: 20101025
  Receipt Date: 20101015
  Transmission Date: 20110411
  Serious: Yes (Death, Hospitalization)
  Sender: FDA-Public Use
  Company Number: TW-JNJFOC-20081201723

PATIENT
  Sex: Male
  Weight: 63.8 kg

DRUGS (36)
  1. CYTARABINE [Suspect]
     Indication: ACUTE MYELOID LEUKAEMIA
     Dosage: DOSE DELAYED DUE TO NEUTROPIC FEVER
     Route: 058
  2. CYTARABINE [Suspect]
     Route: 058
  3. CYTARABINE [Suspect]
     Route: 058
  4. CYTARABINE [Suspect]
     Dosage: CYCLE 1
     Route: 058
  5. REGROW [Concomitant]
     Indication: COUGH
     Dosage: ONCE EVERY BEDTIME (QHS)
     Route: 048
  6. PLATYCODON FLUID EXTRACT [Concomitant]
     Indication: COUGH
     Dosage: 4 TIMES A DAY WHEN NECESSARY
     Route: 048
  7. NERISONE FATTY OINTMENT [Concomitant]
     Dosage: 0.1%
     Route: 061
  8. LORAZEPAM [Concomitant]
     Indication: INSOMNIA
     Dosage: ONCE EVERY BEDTIME (QHS)
     Route: 048
  9. ALLERMIN [Concomitant]
     Indication: PROPHYLAXIS
     Route: 042
  10. DECADRON [Concomitant]
     Indication: PROPHYLAXIS
     Route: 042
  11. PRIMPERAN [Concomitant]
     Indication: PROPHYLAXIS
     Route: 042
  12. AMLODIPINE [Concomitant]
     Indication: HYPERTENSION
     Route: 048
  13. LACTULOSE [Concomitant]
     Indication: ABDOMINAL DISTENSION
     Route: 048
  14. LACTULOSE [Concomitant]
     Route: 048
  15. LACTULOSE [Concomitant]
     Indication: CONSTIPATION
     Route: 048
  16. LACTULOSE [Concomitant]
     Route: 048
  17. ZOLPIDEM [Concomitant]
     Indication: INSOMNIA
     Route: 048
  18. TRIAMCINOLONE ACETONIDE [Concomitant]
     Indication: PROPHYLAXIS
     Route: 061
  19. BENAZON [Concomitant]
     Indication: HAEMORRHOIDS
     Route: 061
  20. BORRAGINOL-N [Concomitant]
     Route: 054
  21. ACETYLCYSTEINE [Concomitant]
     Indication: PNEUMONIA
     Route: 048
  22. ACETYLCYSTEINE [Concomitant]
     Route: 048
  23. LEVOFLOXACIN [Concomitant]
     Route: 048
  24. MAGNESIUM [Concomitant]
     Indication: CONSTIPATION
     Route: 048
  25. SENNA [Concomitant]
     Indication: CONSTIPATION PROPHYLAXIS
     Route: 048
  26. SENNA [Concomitant]
     Route: 048
  27. COMBIVENT [Concomitant]
     Indication: PNEUMONIA
     Dosage: 140 MCG
     Route: 055
  28. TRANEXAMIC ACID [Concomitant]
     Indication: HAEMATURIA
     Route: 042
  29. CEFTAZIDIME [Concomitant]
     Indication: PNEUMONIA
     Route: 042
  30. TIGECYCLINE [Concomitant]
     Indication: PNEUMONIA
     Route: 042
  31. MEGESTROL ACETATE [Concomitant]
     Indication: DECREASED APPETITE
     Route: 048
  32. DIOVAN HCT [Concomitant]
     Indication: HYPERTENSION
     Route: 048
  33. METOCLOPRAMIDE [Concomitant]
     Indication: NAUSEA
     Route: 042
  34. TRAMADOL HYDROCHLORIDE [Concomitant]
     Indication: CELLULITIS
     Route: 042
  35. NITROGLYCERIN [Concomitant]
     Indication: CHEST DISCOMFORT
     Dosage: Q5M P.R.N.
     Route: 060
  36. DICHLOTRIDE [Concomitant]
     Indication: RENAL FAILURE
     Route: 048

REACTIONS (9)
  - CARDIAC FAILURE [None]
  - CELLULITIS [None]
  - DEPRESSED LEVEL OF CONSCIOUSNESS [None]
  - GENERALISED OEDEMA [None]
  - PNEUMONIA [None]
  - PYREXIA [None]
  - RENAL FAILURE [None]
  - SEPTIC SHOCK [None]
  - SHOCK [None]
